FAERS Safety Report 18205083 (Version 6)
Quarter: 2020Q3

REPORT INFORMATION
  Report Type: Spontaneous
  Country: US (occurrence: US)
  Receive Date: 20200828
  Receipt Date: 20200915
  Transmission Date: 20201103
  Serious: Yes (Hospitalization)
  Sender: FDA-Public Use
  Company Number: US-UNITED THERAPEUTICS-UNT-2020-012585

PATIENT
  Age: 65 Year
  Sex: Female
  Weight: 80.73 kg

DRUGS (7)
  1. REMODULIN [Suspect]
     Active Substance: TREPROSTINIL
     Dosage: 0.016 ?G/KG, CONTINUING
     Route: 058
     Dates: start: 2020
  2. REMODULIN [Suspect]
     Active Substance: TREPROSTINIL
     Indication: PULMONARY ARTERIAL HYPERTENSION
     Dosage: UNK, CONTINUING
     Route: 058
     Dates: start: 20200818
  3. REMODULIN [Suspect]
     Active Substance: TREPROSTINIL
     Dosage: UNK, CONTINUING AT RATE OF 0.018 ML/HR
     Route: 058
  4. PEPCID [Suspect]
     Active Substance: FAMOTIDINE
     Indication: PRODUCT USED FOR UNKNOWN INDICATION
     Dosage: UNK
     Route: 065
     Dates: start: 20200826, end: 202008
  5. REMODULIN [Suspect]
     Active Substance: TREPROSTINIL
     Dosage: UNK, CONTINUING AT RATE OF 0.016 ML/HR
     Route: 058
  6. REMODULIN [Suspect]
     Active Substance: TREPROSTINIL
     Dosage: 0.012 ?G/KG, CONTINUING
     Route: 058
     Dates: start: 2020
  7. REMODULIN [Suspect]
     Active Substance: TREPROSTINIL
     Dosage: 0.018 ?G/KG, CONTINUING
     Route: 058
     Dates: start: 202008

REACTIONS (26)
  - Urinary tract infection [Unknown]
  - Dyspnoea exertional [Unknown]
  - Anxiety [Unknown]
  - Depressed mood [Not Recovered/Not Resolved]
  - Skin burning sensation [Unknown]
  - Dyspnoea [Recovering/Resolving]
  - Myalgia [Unknown]
  - Abdominal pain [Unknown]
  - Infusion site pain [Recovering/Resolving]
  - Infusion site warmth [Unknown]
  - Infusion site swelling [Unknown]
  - Migraine [Recovering/Resolving]
  - Infusion site erythema [Unknown]
  - Flushing [Recovered/Resolved]
  - Nausea [Unknown]
  - Arthralgia [Recovering/Resolving]
  - Diarrhoea [Unknown]
  - Tremor [Unknown]
  - Insomnia [Unknown]
  - Pain in extremity [Unknown]
  - Fatigue [Unknown]
  - Malaise [Unknown]
  - Headache [Unknown]
  - Device issue [Unknown]
  - Neuropathy peripheral [Unknown]
  - Nasal congestion [Unknown]

NARRATIVE: CASE EVENT DATE: 2020
